FAERS Safety Report 14548442 (Version 19)
Quarter: 2019Q2

REPORT INFORMATION
  Report Type: Report from Study
  Country: US (occurrence: US)
  Receive Date: 20180219
  Receipt Date: 20190624
  Transmission Date: 20190711
  Serious: Yes (Hospitalization)
  Sender: FDA-Public Use
  Company Number: US-ACTELION-A-NJ2018-166647

PATIENT
  Sex: Female
  Weight: 50.79 kg

DRUGS (9)
  1. SILDENAFIL CITRATE. [Concomitant]
     Active Substance: SILDENAFIL CITRATE
  2. VELETRI [Suspect]
     Active Substance: EPOPROSTENOL
     Indication: PULMONARY HYPERTENSION
     Dosage: 19 NG/KG, PER MIN
     Route: 042
  3. VELETRI [Suspect]
     Active Substance: EPOPROSTENOL
     Dosage: 31 NG/KG, PER MIN
     Route: 042
  4. VELETRI [Suspect]
     Active Substance: EPOPROSTENOL
     Dosage: 23 NG/KG, PER MIN
     Route: 042
  5. VELETRI [Suspect]
     Active Substance: EPOPROSTENOL
     Dosage: 32 NG/KG, PER MIN
     Route: 042
  6. VELETRI [Suspect]
     Active Substance: EPOPROSTENOL
     Dosage: 26 NG/KG, PER MIN
     Route: 042
  7. VELETRI [Suspect]
     Active Substance: EPOPROSTENOL
     Dosage: 30 NG/KG, PER MIN
     Route: 042
  8. ORENITRAM [Concomitant]
     Active Substance: TREPROSTINIL
  9. LETAIRIS [Concomitant]
     Active Substance: AMBRISENTAN

REACTIONS (35)
  - Cellulitis [Unknown]
  - Pain in jaw [Not Recovered/Not Resolved]
  - Catheter site pain [Unknown]
  - Unevaluable event [Unknown]
  - Peripheral swelling [Unknown]
  - Diarrhoea [Unknown]
  - Asthenia [Not Recovered/Not Resolved]
  - Arthralgia [Unknown]
  - Weight decreased [Not Recovered/Not Resolved]
  - Application site pruritus [Unknown]
  - Constipation [Unknown]
  - Back pain [Unknown]
  - Dizziness [Unknown]
  - Dyspnoea exertional [Not Recovered/Not Resolved]
  - Headache [Unknown]
  - Insomnia [Unknown]
  - Dysuria [Unknown]
  - Swelling [Unknown]
  - Pericardial effusion [Unknown]
  - Blood potassium decreased [Unknown]
  - Myalgia [Not Recovered/Not Resolved]
  - Dyspnoea at rest [Not Recovered/Not Resolved]
  - Chest discomfort [Unknown]
  - Dyspnoea [Unknown]
  - Erythema [Unknown]
  - Fluid overload [Unknown]
  - Decreased appetite [Not Recovered/Not Resolved]
  - Hot flush [Recovering/Resolving]
  - Catheter site rash [Unknown]
  - Drug intolerance [Unknown]
  - Catheter site cellulitis [Unknown]
  - Abdominal pain [Unknown]
  - Nausea [Unknown]
  - Condition aggravated [Unknown]
  - Somnolence [Unknown]
